FAERS Safety Report 4682864-X (Version None)
Quarter: 2005Q2

REPORT INFORMATION
  Report Type: 
  Country: None (occurrence: None)
  Receive Date: 20050531
  Receipt Date: 20050314
  Transmission Date: 20051028
  Serious: Yes (Hospitalization, Other)
  Sender: FDA-Public Use
  Company Number: 200512022US

PATIENT
  Sex: Female

DRUGS (3)
  1. LOVENOX [Suspect]
  2. WARFARIN SODIUM [Concomitant]
  3. TRAMADOL HYDROCHLORIDE (ULTRAM) [Concomitant]

REACTIONS (9)
  - FATIGUE [None]
  - GASTRIC ULCER HAEMORRHAGE [None]
  - HAEMORRHAGE [None]
  - HYPERHIDROSIS [None]
  - LOCALISED INFECTION [None]
  - PAIN IN EXTREMITY [None]
  - SCIATICA [None]
  - THROMBOSIS [None]
  - WHOLE BLOOD TRANSFUSION [None]
